FAERS Safety Report 9779994 (Version 2)
Quarter: 2014Q1

REPORT INFORMATION
  Report Type: Spontaneous
  Country: IT (occurrence: IT)
  Receive Date: 20131223
  Receipt Date: 20140219
  Transmission Date: 20141002
  Serious: Yes (Hospitalization)
  Sender: FDA-Public Use
  Company Number: IT-WATSON-2013-22917

PATIENT
  Age: 86 Year
  Sex: Female

DRUGS (14)
  1. METFORMIN (UNKNOWN) [Suspect]
     Indication: INTENTIONAL OVERDOSE
     Dosage: 1500 MG, TOTAL
     Route: 048
     Dates: start: 20130417, end: 20130417
  2. METFORMIN (UNKNOWN) [Suspect]
     Dosage: 500 MG, DAILY
     Route: 048
  3. BISOPROLOL (UNKNOWN) [Suspect]
     Indication: INTENTIONAL OVERDOSE
     Dosage: 3 DF, TOTAL
     Route: 048
     Dates: start: 20130417, end: 20130417
  4. TAVOR /00273201/ [Suspect]
     Indication: INTENTIONAL OVERDOSE
     Dosage: 6 DF, TOTAL
     Route: 048
     Dates: start: 20130417, end: 20130417
  5. CIPRALEX [Suspect]
     Indication: INTENTIONAL OVERDOSE
     Dosage: 10 MG, 3 DF, TOTAL
     Route: 048
     Dates: start: 20130417, end: 20130417
  6. CIPRALEX [Suspect]
     Dosage: 10 MG, UNK
     Route: 048
  7. DIAMICRON [Suspect]
     Indication: INTENTIONAL OVERDOSE
     Dosage: 30 MG, 3 DF, TOTAL
     Route: 048
     Dates: start: 20130417, end: 20130417
  8. DIAMICRON [Suspect]
     Dosage: 30 DF, TID
     Route: 048
  9. TACHIPIRINA [Suspect]
     Indication: INTENTIONAL OVERDOSE
     Dosage: 3 DF, TOTAL
     Route: 048
     Dates: start: 20130417, end: 20130417
  10. SERENASE /00015301/ [Suspect]
     Indication: INTENTIONAL OVERDOSE
     Dosage: 0.5 MG, 2 DF, TOTAL
     Route: 048
     Dates: start: 20130417, end: 20130417
  11. COUMADIN                           /00014802/ [Concomitant]
     Indication: PRODUCT USED FOR UNKNOWN INDICATION
     Dosage: 5 MG, UNK
     Route: 065
     Dates: start: 20130417, end: 20130417
  12. DIBASE [Concomitant]
     Indication: PRODUCT USED FOR UNKNOWN INDICATION
     Dosage: 100, 1 VIAL/MONTH
     Route: 030
  13. NEXIUM                             /01479302/ [Concomitant]
     Indication: PRODUCT USED FOR UNKNOWN INDICATION
     Dosage: UNK
     Route: 065
  14. ISOPTIN                            /00014302/ [Concomitant]
     Indication: PRODUCT USED FOR UNKNOWN INDICATION
     Dosage: 80 MG, UNK
     Route: 065

REACTIONS (5)
  - Sopor [Recovered/Resolved]
  - Bradycardia [Recovered/Resolved]
  - Intentional overdose [Recovered/Resolved]
  - Psychomotor hyperactivity [Recovered/Resolved]
  - Drug abuse [Recovered/Resolved]
